FAERS Safety Report 9198984 (Version 1)
Quarter: 2013Q1

REPORT INFORMATION
  Report Type: Spontaneous
  Country: NL (occurrence: NL)
  Receive Date: 20130329
  Receipt Date: 20130329
  Transmission Date: 20140127
  Serious: Yes (Life-Threatening)
  Sender: FDA-Public Use
  Company Number: NL-009507513-1303NLD012943

PATIENT
  Age: 62 Year
  Sex: Male
  Weight: 105 kg

DRUGS (4)
  1. ZOCOR [Suspect]
     Indication: HYPERCHOLESTEROLAEMIA
     Dosage: 10 MG, QD
     Route: 048
     Dates: start: 201301, end: 201302
  2. METFORMIN [Concomitant]
     Dosage: 500 MG, QD
     Dates: start: 201106
  3. TAMSULOSIN HYDROCHLORIDE [Concomitant]
     Dosage: 1 DF, QD
     Dates: start: 201106
  4. ZOCOR [Suspect]
     Dosage: 40 MG, UNK
     Route: 048

REACTIONS (1)
  - Impaired driving ability [Recovered/Resolved]
